FAERS Safety Report 10068573 (Version 5)
Quarter: 2014Q2

REPORT INFORMATION
  Report Type: Spontaneous
  Country: GB (occurrence: GB)
  Receive Date: 20140409
  Receipt Date: 20140606
  Transmission Date: 20141212
  Serious: Yes (Hospitalization, Other)
  Sender: FDA-Public Use
  Company Number: GB-ABBVIE-14P-167-1223781-00

PATIENT
  Age: 82 Year
  Sex: Male

DRUGS (5)
  1. EPILIM CHRONO [Suspect]
     Indication: CONVULSION
     Route: 048
     Dates: start: 20120703
  2. EPILIM CHRONO [Suspect]
     Indication: EPILEPSY
     Dates: start: 2013
  3. EPILIM CHRONO [Suspect]
     Route: 048
     Dates: start: 20140208
  4. CLOPIDOGREL [Concomitant]
     Indication: PRODUCT USED FOR UNKNOWN INDICATION
     Dates: start: 20130521
  5. SIMVASTATIN [Concomitant]
     Indication: PRODUCT USED FOR UNKNOWN INDICATION
     Dates: start: 20130521

REACTIONS (14)
  - Feeling cold [Unknown]
  - Pain in extremity [Unknown]
  - Mobility decreased [Unknown]
  - Aphasia [Unknown]
  - Impaired self-care [Unknown]
  - Bedridden [Unknown]
  - Sluggishness [Unknown]
  - Fatigue [Unknown]
  - Cognitive disorder [Unknown]
  - Dementia [Unknown]
  - Convulsion [Unknown]
  - Encephalopathy [Unknown]
  - Somnolence [Unknown]
  - Pneumonia [Unknown]
